FAERS Safety Report 20164267 (Version 1)
Quarter: 2021Q4

REPORT INFORMATION
  Report Type: Spontaneous
  Country: US (occurrence: US)
  Receive Date: 20211209
  Receipt Date: 20211209
  Transmission Date: 20220304
  Serious: No
  Sender: FDA-Public Use
  Company Number: US-UNITED THERAPEUTICS-UNT-2021-023690

PATIENT
  Sex: Female
  Weight: 68.027 kg

DRUGS (5)
  1. REMODULIN [Suspect]
     Active Substance: TREPROSTINIL
     Indication: Pulmonary arterial hypertension
     Dosage: UNK, CONTINUING
     Route: 058
     Dates: start: 20210527
  2. REMODULIN [Suspect]
     Active Substance: TREPROSTINIL
     Dosage: 0.033 ?G/KG, CONTINUING
     Route: 058
     Dates: start: 2021
  3. OPSUMIT [Suspect]
     Active Substance: MACITENTAN
     Indication: Pulmonary arterial hypertension
     Dosage: 10 MG DAILY
     Route: 048
     Dates: start: 20211025
  4. NIFEDIPINE [Concomitant]
     Active Substance: NIFEDIPINE
     Indication: Product used for unknown indication
     Dosage: UNK
     Route: 065
  5. LASIX [Concomitant]
     Active Substance: FUROSEMIDE
     Indication: Product used for unknown indication
     Dosage: UNK
     Route: 065

REACTIONS (6)
  - Infusion site erythema [Unknown]
  - Infusion site swelling [Unknown]
  - Infusion site pain [Unknown]
  - Thyroid function test abnormal [Unknown]
  - Pulmonary arterial pressure increased [Unknown]
  - Pain in extremity [Unknown]

NARRATIVE: CASE EVENT DATE: 20210101
